FAERS Safety Report 9409954 (Version 1)
Quarter: 2013Q3

REPORT INFORMATION
  Report Type: Spontaneous
  Country: FR (occurrence: FR)
  Receive Date: 20130719
  Receipt Date: 20130719
  Transmission Date: 20140515
  Serious: Yes (Other)
  Sender: FDA-Public Use
  Company Number: FR-JNJFOC-20081106059

PATIENT
  Sex: 0

DRUGS (18)
  1. INFLIXIMAB [Suspect]
     Indication: SJOGREN^S SYNDROME
     Route: 042
  2. INFLIXIMAB [Suspect]
     Indication: CROHN^S DISEASE
     Route: 042
  3. INFLIXIMAB [Suspect]
     Indication: PSORIATIC ARTHROPATHY
     Route: 042
  4. INFLIXIMAB [Suspect]
     Indication: ANKYLOSING SPONDYLITIS
     Route: 042
  5. INFLIXIMAB [Suspect]
     Indication: RHEUMATOID ARTHRITIS
     Route: 042
  6. ADALIMUMAB [Suspect]
     Indication: SJOGREN^S SYNDROME
     Route: 065
  7. ADALIMUMAB [Suspect]
     Indication: CROHN^S DISEASE
     Route: 065
  8. ADALIMUMAB [Suspect]
     Indication: PSORIATIC ARTHROPATHY
     Route: 065
  9. ADALIMUMAB [Suspect]
     Indication: ANKYLOSING SPONDYLITIS
     Route: 065
  10. ADALIMUMAB [Suspect]
     Indication: RHEUMATOID ARTHRITIS
     Route: 065
  11. ETANERCEPT [Suspect]
     Indication: SJOGREN^S SYNDROME
     Route: 065
  12. ETANERCEPT [Suspect]
     Indication: CROHN^S DISEASE
     Route: 065
  13. ETANERCEPT [Suspect]
     Indication: PSORIATIC ARTHROPATHY
     Route: 065
  14. ETANERCEPT [Suspect]
     Indication: ANKYLOSING SPONDYLITIS
     Route: 065
  15. ETANERCEPT [Suspect]
     Indication: RHEUMATOID ARTHRITIS
     Route: 065
  16. METHOTREXATE [Concomitant]
     Route: 065
  17. AZATHIOPRINE [Concomitant]
     Route: 065
  18. LEFLUNOMIDE [Concomitant]
     Route: 065

REACTIONS (2)
  - Non-Hodgkin^s lymphoma [Unknown]
  - Hodgkin^s disease [Unknown]
